FAERS Safety Report 21553111 (Version 1)
Quarter: 2022Q4

REPORT INFORMATION
  Report Type: Spontaneous
  Country: KR (occurrence: KR)
  Receive Date: 20221104
  Receipt Date: 20221104
  Transmission Date: 20230112
  Serious: Yes (Other)
  Sender: FDA-Public Use
  Company Number: KR-MYLANLABS-2022M1121353

PATIENT
  Age: 72 Year
  Sex: Female

DRUGS (2)
  1. LYRICA [Suspect]
     Active Substance: PREGABALIN
     Indication: Large intestine benign neoplasm
     Dosage: 75 MILLIGRAM, QD
     Route: 065
     Dates: start: 20190416
  2. TIZANIDINE HYDROCHLORIDE [Suspect]
     Active Substance: TIZANIDINE HYDROCHLORIDE
     Indication: Large intestine benign neoplasm
     Dosage: 1 MILLIGRAM, QD
     Route: 065
     Dates: start: 20190416

REACTIONS (3)
  - Narcolepsy [Recovering/Resolving]
  - Listless [Recovering/Resolving]
  - Off label use [Unknown]

NARRATIVE: CASE EVENT DATE: 20190416
